FAERS Safety Report 18281354 (Version 2)
Quarter: 2020Q4

REPORT INFORMATION
  Report Type: Spontaneous
  Country: US (occurrence: US)
  Receive Date: 20200918
  Receipt Date: 20201123
  Transmission Date: 20210113
  Serious: Yes (Death, Hospitalization, Disabling, Other)
  Sender: FDA-Public Use
  Company Number: US-SA-2020SA251898

PATIENT

DRUGS (1)
  1. ZANTAC [Suspect]
     Active Substance: RANITIDINE HYDROCHLORIDE
     Dosage: UNK
     Dates: start: 201401, end: 201901

REACTIONS (7)
  - Pain [Unknown]
  - Deformity [Unknown]
  - Anxiety [Unknown]
  - Hospitalisation [Unknown]
  - Lung neoplasm malignant [Fatal]
  - Anhedonia [Unknown]
  - Disability [Unknown]

NARRATIVE: CASE EVENT DATE: 20190106
